FAERS Safety Report 9173230 (Version 1)
Quarter: 2013Q1

REPORT INFORMATION
  Report Type: Spontaneous
  Country: US (occurrence: None)
  Receive Date: 20130319
  Receipt Date: 20130319
  Transmission Date: 20140127
  Serious: Yes (Life-Threatening, Hospitalization)
  Sender: FDA-Public Use
  Company Number: None

PATIENT
  Age: 27 Year
  Sex: Male
  Weight: 67 kg

DRUGS (2)
  1. ENTOCORT [Suspect]
     Route: 048
     Dates: start: 20121217, end: 20130107
  2. ENTOCORT [Suspect]
     Route: 048
     Dates: start: 20121217, end: 20130107

REACTIONS (1)
  - Liver abscess [None]
